FAERS Safety Report 13154400 (Version 1)
Quarter: 2017Q1

REPORT INFORMATION
  Report Type: Report from Study
  Country: US (occurrence: US)
  Receive Date: 20170126
  Receipt Date: 20170126
  Transmission Date: 20170428
  Serious: No
  Sender: FDA-Public Use
  Company Number: US-AMGEN-USASL2016131618

PATIENT
  Sex: Male

DRUGS (2)
  1. KYPROLIS [Suspect]
     Active Substance: CARFILZOMIB
     Indication: PLASMA CELL MYELOMA
     Dosage: 42 MG, PER TWENTY EIGHT DAYS
     Route: 065
  2. POMALYST [Concomitant]
     Active Substance: POMALIDOMIDE
     Dosage: UNK

REACTIONS (4)
  - Feeling abnormal [Unknown]
  - Fatigue [Unknown]
  - Dyspnoea [Unknown]
  - Cardiac disorder [Unknown]
